FAERS Safety Report 4811182-1 (Version None)
Quarter: 2005Q4

REPORT INFORMATION
  Report Type: 
  Country: None (occurrence: None)
  Receive Date: 20051025
  Receipt Date: 20051014
  Transmission Date: 20060501
  Serious: Yes (Hospitalization, Other)
  Sender: FDA-Public Use
  Company Number: 2005131382

PATIENT
  Age: 62 Year
  Sex: Female
  Weight: 58.9676 kg

DRUGS (6)
  1. NEURONTIN [Suspect]
     Indication: SPASTIC PARALYSIS
     Dosage: 2900 MG DAILY
  2. DETROL LA [Suspect]
     Indication: URINARY INCONTINENCE
     Dosage: 2 MG (2 MG, 1 IN 1 D), ORAL
     Route: 048
  3. BACLOFEN [Suspect]
     Indication: SPASTIC PARALYSIS
     Dates: start: 19970101
  4. FUROSEMIDE [Suspect]
     Indication: FLUID RETENTION
  5. INSULIN [Concomitant]
  6. RANITIDINE HCL [Concomitant]

REACTIONS (9)
  - ABDOMINAL RIGIDITY [None]
  - CARDIAC FAILURE CONGESTIVE [None]
  - CORONARY ARTERY SURGERY [None]
  - DIZZINESS [None]
  - DRY MOUTH [None]
  - FLUID RETENTION [None]
  - HEADACHE [None]
  - URINARY INCONTINENCE [None]
  - URINARY TRACT INFECTION [None]
